FAERS Safety Report 8606622-6 (Version None)
Quarter: 2012Q3

REPORT INFORMATION
  Report Type: 
  Country: None (occurrence: None)
  Receive Date: 20120809
  Receipt Date: 20120809
  Transmission Date: 20120928
  Serious: Yes (Life-Threatening)
  Sender: FDA-Public Use
  Company Number: None

PATIENT
  Age: 75 Year
  Sex: Male
  Weight: 110 kg

DRUGS (2)
  1. LISINOPRIL [Suspect]
     Indication: HYPERTENSION
     Dosage: 10 MG EVERY DAY PO
     Route: 048
     Dates: start: 20090408, end: 20120422
  2. LISINOPRIL [Suspect]
     Indication: DIABETES MELLITUS
     Dosage: 10 MG EVERY DAY PO
     Route: 048
     Dates: start: 20090408, end: 20120422

REACTIONS (1)
  - ANGIOEDEMA [None]
